FAERS Safety Report 6680670-8 (Version None)
Quarter: 2010Q2

REPORT INFORMATION
  Report Type: 
  Country: None (occurrence: None)
  Receive Date: 20100414
  Receipt Date: 20100408
  Transmission Date: 20101027
  Serious: Yes (Other)
  Sender: FDA-Public Use
  Company Number: US-PFIZER INC-2010045405

PATIENT
  Sex: Male
  Weight: 79.365 kg

DRUGS (2)
  1. VIAGRA [Suspect]
     Indication: ERECTILE DYSFUNCTION
     Dosage: 50 MG, AS NEEDED
     Route: 048
     Dates: start: 20030101
  2. AMLODIPINE [Concomitant]
     Indication: BLOOD PRESSURE
     Dosage: 2.5 MG, 2X/DAY

REACTIONS (6)
  - ARTHRALGIA [None]
  - ARTHRITIS [None]
  - BLOOD URIC ACID INCREASED [None]
  - DRUG EFFECT DECREASED [None]
  - HYPERSENSITIVITY [None]
  - SYNOVIAL FLUID CRYSTAL PRESENT [None]
